FAERS Safety Report 4614221-6 (Version None)
Quarter: 2005Q1

REPORT INFORMATION
  Report Type: 
  Country: None (occurrence: None)
  Receive Date: 20050315
  Receipt Date: 20050302
  Transmission Date: 20050727
  Serious: Yes (Life-Threatening, Hospitalization)
  Sender: FDA-Public Use
  Company Number: B0297706A

PATIENT
  Age: 16 Year
  Sex: Female
  Weight: 55.8832 kg

DRUGS (2)
  1. LAMICTAL [Suspect]
     Indication: EPILEPSY
     Dates: start: 20021207, end: 20021228
  2. VALPROATE SODIUM [Concomitant]

REACTIONS (5)
  - ALANINE AMINOTRANSFERASE INCREASED [None]
  - ASPARTATE AMINOTRANSFERASE INCREASED [None]
  - DYSPNOEA [None]
  - HYPERSENSITIVITY [None]
  - TOXIC EPIDERMAL NECROLYSIS [None]
